FAERS Safety Report 8287324-5 (Version None)
Quarter: 2012Q2

REPORT INFORMATION
  Report Type: 
  Country: None (occurrence: None)
  Receive Date: 20120416
  Receipt Date: 20120416
  Transmission Date: 20120825
  Serious: Yes (Hospitalization)
  Sender: FDA-Public Use
  Company Number: None

PATIENT
  Age: 56 Year
  Sex: Female
  Weight: 122.92 kg

DRUGS (2)
  1. CYMBALTA [Suspect]
     Indication: FIBROMYALGIA
     Dosage: 60.0 MG
     Route: 048
  2. CYMBALTA [Concomitant]
     Dosage: 30 MG
     Route: 048

REACTIONS (5)
  - ANGER [None]
  - SUICIDAL IDEATION [None]
  - HOMICIDAL IDEATION [None]
  - WITHDRAWAL SYNDROME [None]
  - PARAESTHESIA [None]
